FAERS Safety Report 24006542 (Version 1)
Quarter: 2024Q2

REPORT INFORMATION
  Report Type: Spontaneous
  Country: US (occurrence: US)
  Receive Date: 20240624
  Receipt Date: 20240624
  Transmission Date: 20240716
  Serious: Yes (Hospitalization)
  Sender: FDA-Public Use
  Company Number: US-TORRENT-00013637

PATIENT
  Age: 55 Year
  Sex: Male

DRUGS (1)
  1. DAPSONE [Suspect]
     Active Substance: DAPSONE
     Indication: Dermatitis herpetiformis
     Dosage: DOSE INCREASE TWO WEEKS AGO
     Route: 065

REACTIONS (1)
  - Methaemoglobinaemia [Unknown]
